FAERS Safety Report 4394415-8 (Version None)
Quarter: 2004Q3

REPORT INFORMATION
  Report Type: 
  Country: None (occurrence: None)
  Receive Date: 20040707
  Receipt Date: 20040623
  Transmission Date: 20050211
  Serious: Yes (Hospitalization)
  Sender: FDA-Public Use
  Company Number: 188452

PATIENT
  Age: 46 Year
  Sex: Female
  Weight: 56.6996 kg

DRUGS (7)
  1. AVONEX [Suspect]
     Indication: MULTIPLE SCLEROSIS
     Dosage: 30 MCG QW IM
     Route: 030
     Dates: start: 19990101, end: 20030101
  2. AVONEX [Suspect]
     Indication: MULTIPLE SCLEROSIS
     Dosage: 30 MCG QW IM
     Route: 030
     Dates: start: 20031107
  3. FOLIC ACID [Concomitant]
  4. ZANAFLEX [Concomitant]
  5. SERZONE [Concomitant]
  6. NAPROXEN [Concomitant]
  7. NEURONTIN [Concomitant]

REACTIONS (10)
  - DERMOID CYST [None]
  - ERYTHEMA [None]
  - HAEMORRHAGE [None]
  - INFLUENZA LIKE ILLNESS [None]
  - MENORRHAGIA [None]
  - OVARIAN CYST [None]
  - PRURITUS [None]
  - PURPURA [None]
  - SECRETION DISCHARGE [None]
  - URTICARIA [None]
